FAERS Safety Report 15631283 (Version 2)
Quarter: 2025Q3

REPORT INFORMATION
  Report Type: Spontaneous
  Country: EU (occurrence: EU)
  Receive Date: 20181119
  Receipt Date: 20250722
  Transmission Date: 20251020
  Serious: Yes (Other)
  Sender: AUROBINDO
  Company Number: EU-AUROBINDO-AUR-APL-2018-055653

PATIENT
  Age: 63 Year
  Sex: Male

DRUGS (24)
  1. ZOLEDRONIC ACID [Suspect]
     Active Substance: ZOLEDRONIC ACID
     Indication: Metastases to bone
     Route: 065
     Dates: start: 201502, end: 201702
  2. ZOLEDRONIC ACID [Suspect]
     Active Substance: ZOLEDRONIC ACID
     Indication: Paraganglion neoplasm malignant
     Route: 065
     Dates: start: 201703
  3. ZOLEDRONIC ACID [Suspect]
     Active Substance: ZOLEDRONIC ACID
     Indication: Metastases to soft tissue
  4. LANREOTIDE ACETATE [Suspect]
     Active Substance: LANREOTIDE ACETATE
     Indication: Metastases to soft tissue
     Route: 065
     Dates: start: 201502, end: 201702
  5. LANREOTIDE ACETATE [Suspect]
     Active Substance: LANREOTIDE ACETATE
     Indication: Metastases to bone
     Route: 065
     Dates: start: 201703
  6. LANREOTIDE ACETATE [Suspect]
     Active Substance: LANREOTIDE ACETATE
     Indication: Paraganglion neoplasm malignant
  7. TEMOZOLOMIDE [Suspect]
     Active Substance: TEMOZOLOMIDE
     Indication: Metastases to bone
     Route: 065
     Dates: start: 201512, end: 201702
  8. TEMOZOLOMIDE [Suspect]
     Active Substance: TEMOZOLOMIDE
     Indication: Paraganglion neoplasm malignant
     Route: 065
     Dates: start: 201703
  9. TEMOZOLOMIDE [Suspect]
     Active Substance: TEMOZOLOMIDE
     Indication: Metastases to soft tissue
  10. DACARBAZINE [Suspect]
     Active Substance: DACARBAZINE
     Indication: Metastases to soft tissue
     Route: 065
     Dates: start: 201502, end: 2015
  11. DACARBAZINE [Suspect]
     Active Substance: DACARBAZINE
     Indication: Paraganglion neoplasm malignant
  12. DACARBAZINE [Suspect]
     Active Substance: DACARBAZINE
     Indication: Metastases to bone
  13. CYCLOPHOSPHAMIDE [Suspect]
     Active Substance: CYCLOPHOSPHAMIDE
     Indication: Paraganglion neoplasm malignant
     Route: 065
     Dates: start: 201502, end: 2015
  14. CYCLOPHOSPHAMIDE [Suspect]
     Active Substance: CYCLOPHOSPHAMIDE
     Indication: Metastases to bone
  15. CYCLOPHOSPHAMIDE [Suspect]
     Active Substance: CYCLOPHOSPHAMIDE
     Indication: Metastases to soft tissue
  16. VINCRISTINE SULFATE [Suspect]
     Active Substance: VINCRISTINE SULFATE
     Indication: Metastases to bone
     Route: 065
     Dates: start: 201502, end: 2015
  17. VINCRISTINE SULFATE [Suspect]
     Active Substance: VINCRISTINE SULFATE
     Indication: Paraganglion neoplasm malignant
  18. VINCRISTINE SULFATE [Suspect]
     Active Substance: VINCRISTINE SULFATE
     Indication: Metastases to soft tissue
  19. LANREOTIDE [Suspect]
     Active Substance: LANREOTIDE
     Indication: Metastases to bone
     Route: 065
  20. LANREOTIDE [Suspect]
     Active Substance: LANREOTIDE
     Indication: Paraganglion neoplasm malignant
  21. LANREOTIDE [Suspect]
     Active Substance: LANREOTIDE
     Indication: Metastases to soft tissue
  22. OLMESARTAN [Concomitant]
     Active Substance: OLMESARTAN
     Indication: Hypertension
     Route: 065
  23. HYDROCHLOROTHIAZIDE [Concomitant]
     Active Substance: HYDROCHLOROTHIAZIDE
     Route: 065
  24. FENTANYL [Concomitant]
     Active Substance: FENTANYL
     Indication: Pain
     Route: 065

REACTIONS (5)
  - Lymphopenia [Unknown]
  - Condition aggravated [Recovering/Resolving]
  - Metabolic disorder [Unknown]
  - Paraganglion neoplasm malignant [Unknown]
  - Drug ineffective [Unknown]

NARRATIVE: CASE EVENT DATE: 20150101
